FAERS Safety Report 8792237 (Version 7)
Quarter: 2013Q1

REPORT INFORMATION
  Report Type: Spontaneous
  Country: US (occurrence: US)
  Receive Date: 20120918
  Receipt Date: 20130226
  Transmission Date: 20140127
  Serious: Yes (Hospitalization)
  Sender: FDA-Public Use
  Company Number: US-PFIZER INC-2012225929

PATIENT
  Age: 49 Year
  Sex: Male
  Weight: 81 kg

DRUGS (6)
  1. SUTENT [Suspect]
     Indication: PANCREATIC NEUROENDOCRINE TUMOUR
     Dosage: 50 MG, ONCE DAILY, FOR 28 DAYS ON TREATMENT FOLLOWED BY 14 DAYS OFF
     Route: 048
     Dates: start: 20120909
  2. SUTENT [Suspect]
     Indication: HEPATIC CANCER
     Dosage: UNK
     Dates: start: 20121202
  3. PEPCID [Concomitant]
     Dosage: UNK
  4. VITAMIN B12 [Concomitant]
     Dosage: UNK
  5. ONDANSETRON [Concomitant]
     Dosage: UNK
  6. DIFLUCAN [Concomitant]
     Dosage: UNK

REACTIONS (22)
  - Vomiting projectile [Unknown]
  - Myalgia [Unknown]
  - Muscle spasms [Unknown]
  - Gastrooesophageal reflux disease [Unknown]
  - Nasal disorder [Not Recovered/Not Resolved]
  - Stomatitis [Not Recovered/Not Resolved]
  - Back pain [Not Recovered/Not Resolved]
  - Abdominal distension [Unknown]
  - Flatulence [Unknown]
  - Nausea [Unknown]
  - Fatigue [Unknown]
  - Appetite disorder [Unknown]
  - Fungal infection [Recovered/Resolved]
  - Upper respiratory tract infection [Unknown]
  - Dyspepsia [Unknown]
  - Feeling abnormal [Unknown]
  - Pain in extremity [Unknown]
  - Pain in extremity [Unknown]
  - Palmar-plantar erythrodysaesthesia syndrome [Unknown]
  - Disease progression [Unknown]
  - Pancreatic neuroendocrine tumour [Unknown]
  - Hepatic cancer [Unknown]
